FAERS Safety Report 6690065-9 (Version None)
Quarter: 2010Q2

REPORT INFORMATION
  Report Type: 
  Country: None (occurrence: None)
  Receive Date: 20100421
  Receipt Date: 20100413
  Transmission Date: 20101027
  Serious: Yes (Other)
  Sender: FDA-Public Use
  Company Number: PHHY2010BR17588

PATIENT
  Sex: Female
  Weight: 120 kg

DRUGS (1)
  1. FORASEQ [Suspect]
     Indication: BRONCHITIS CHRONIC
     Dosage: 1 INHALATION WITH EACH ACTIVE PRINCIPLE, TWICE A DAY (AT 10:00AM AND AT 16:00 PM
     Dates: start: 20040101

REACTIONS (8)
  - CAESAREAN SECTION [None]
  - DEVICE MALFUNCTION [None]
  - DIABETES MELLITUS [None]
  - DRUG EXPOSURE DURING PREGNANCY [None]
  - DYSPNOEA [None]
  - HIGH RISK PREGNANCY [None]
  - HYPERTENSION [None]
  - NORMAL NEWBORN [None]
